FAERS Safety Report 7949169-2 (Version None)
Quarter: 2011Q4

REPORT INFORMATION
  Report Type: 
  Country: None (occurrence: None)
  Receive Date: 20111130
  Receipt Date: 20111123
  Transmission Date: 20120403
  Serious: Yes (Congenital Anomaly, Other)
  Sender: FDA-Public Use
  Company Number: FR-UCBSA-022550

PATIENT
  Sex: Male
  Weight: 3.2 kg

DRUGS (2)
  1. SPECIAFOLDINE [Concomitant]
     Route: 048
     Dates: start: 20080901
  2. KEPPRA [Suspect]
     Indication: EPILEPSY
     Route: 064
     Dates: end: 20091024

REACTIONS (2)
  - HYPOSPADIAS [None]
  - FOETAL EXPOSURE DURING PREGNANCY [None]
